FAERS Safety Report 9677926 (Version 1)
Quarter: 2013Q4

REPORT INFORMATION
  Report Type: Spontaneous
  Country: US (occurrence: US)
  Receive Date: 20131108
  Receipt Date: 20131108
  Transmission Date: 20140711
  Serious: Yes (Other)
  Sender: FDA-Public Use
  Company Number: US-B.I. PHARMACEUTICALS,INC./RIDGEFIELD-2013-BI-35609BP

PATIENT
  Age: 56 Year
  Sex: Female
  Weight: 75 kg

DRUGS (1)
  1. DULCOLAX TABLETS [Suspect]
     Indication: BOWEL PREPARATION
     Dosage: 20 MG
     Route: 048
     Dates: start: 2007, end: 2007

REACTIONS (3)
  - Uterine cancer [Not Recovered/Not Resolved]
  - Menopause [Recovered/Resolved]
  - Off label use [Recovered/Resolved]
